FAERS Safety Report 20677302 (Version 3)
Quarter: 2022Q3

REPORT INFORMATION
  Report Type: Spontaneous
  Country: US (occurrence: US)
  Receive Date: 20220406
  Receipt Date: 20220817
  Transmission Date: 20221026
  Serious: Yes (Other)
  Sender: FDA-Public Use
  Company Number: US-BRISTOL-MYERS SQUIBB COMPANY-2022-010903

PATIENT
  Age: 78 Year
  Sex: Male

DRUGS (1)
  1. ORENCIA [Suspect]
     Active Substance: ABATACEPT
     Indication: Product used for unknown indication
     Dosage: DOSE : 125MG;     FREQ : INJECT 125MG (1 PEN) SUBCUTANEOUSLY ONCE A WEEK , ONE SYRINGE ONCE A?WEEK
     Route: 058

REACTIONS (2)
  - COVID-19 [Unknown]
  - Fracture [Unknown]
